FAERS Safety Report 23991693 (Version 3)
Quarter: 2024Q3

REPORT INFORMATION
  Report Type: Report from Study
  Country: CA (occurrence: CA)
  Receive Date: 20240619
  Receipt Date: 20240930
  Transmission Date: 20241016
  Serious: Yes (Other)
  Sender: SANDOZ
  Company Number: CA-SANDOZ-SDZ2024CA058926

PATIENT
  Sex: Female

DRUGS (2)
  1. HYRIMOZ [Suspect]
     Active Substance: ADALIMUMAB-ADAZ
     Indication: Rheumatoid arthritis
     Dosage: 40MG/0.8ML;EVERY TWO WEEKS
     Route: 058
     Dates: start: 20240323
  2. HYRIMOZ [Suspect]
     Active Substance: ADALIMUMAB-ADAZ
     Dosage: 40MG/0.4ML;EVERY 10 DAYS
     Route: 058

REACTIONS (5)
  - Rheumatoid arthritis [Unknown]
  - Mental disorder [Unknown]
  - Product dose omission issue [Unknown]
  - Ligament rupture [Unknown]
  - Off label use [Unknown]
